FAERS Safety Report 4748732-X (Version None)
Quarter: 2005Q3

REPORT INFORMATION
  Report Type: 
  Country: None (occurrence: None)
  Receive Date: 20050817
  Receipt Date: 20050804
  Transmission Date: 20060218
  Serious: Yes (Disabling)
  Sender: FDA-Public Use
  Company Number: 2005111894

PATIENT
  Age: 58 Year
  Sex: Male
  Weight: 68.0396 kg

DRUGS (4)
  1. LIPITOR [Suspect]
     Indication: BLOOD CHOLESTEROL INCREASED
     Dosage: 20 MG (20 MG, 1 IN 1 D)
  2. LOTREL (AMLODIPINE, ENAZEPRIL HYDROCHLORIDE) [Concomitant]
  3. BENICOR (OLMESARTAN MEDOXOMIL) [Concomitant]
  4. CLONIDINE [Concomitant]

REACTIONS (5)
  - ARTHRITIS [None]
  - BLOOD CHOLESTEROL ABNORMAL [None]
  - CONDITION AGGRAVATED [None]
  - FRACTURE [None]
  - INTERVERTEBRAL DISC DISORDER [None]
